FAERS Safety Report 7954523-9 (Version None)
Quarter: 2011Q4

REPORT INFORMATION
  Report Type: 
  Country: None (occurrence: None)
  Receive Date: 20111202
  Receipt Date: 20111121
  Transmission Date: 20120403
  Serious: Yes (Hospitalization, Other)
  Sender: FDA-Public Use
  Company Number: PHHY2011US102302

PATIENT
  Age: 70 Year
  Sex: Male

DRUGS (4)
  1. SPIRONOLACTONE [Concomitant]
  2. VALSARTAN [Suspect]
  3. INSULIN [Concomitant]
  4. CARVEDILOL [Concomitant]

REACTIONS (16)
  - OEDEMA [None]
  - RESPIRATORY DISTRESS [None]
  - DYSPNOEA [None]
  - NODAL RHYTHM [None]
  - HYPERKALAEMIA [None]
  - BODY TEMPERATURE DECREASED [None]
  - ATRIOVENTRICULAR BLOCK [None]
  - HEART RATE DECREASED [None]
  - BLOOD CREATININE INCREASED [None]
  - BLOOD GLUCOSE INCREASED [None]
  - SINUS ARREST [None]
  - RENAL FAILURE [None]
  - BLOOD UREA INCREASED [None]
  - HYPOTENSION [None]
  - RALES [None]
  - ASTHENIA [None]
